FAERS Safety Report 11242562 (Version 1)
Quarter: 2015Q3

REPORT INFORMATION
  Report Type: Spontaneous
  Country: GB (occurrence: None)
  Receive Date: 20150702
  Receipt Date: 20150702
  Transmission Date: 20151125
  Serious: Yes (Hospitalization)
  Sender: FDA-Public Use
  Company Number: GB-LHC-2015078

PATIENT
  Age: 12 Year
  Sex: Female
  Weight: 50 kg

DRUGS (13)
  1. POSACONAZOLE [Concomitant]
     Active Substance: POSACONAZOLE
  2. METHOTREXATE [Suspect]
     Active Substance: METHOTREXATE
     Indication: ACUTE LEUKAEMIA IN REMISSION
     Route: 037
     Dates: start: 20150128, end: 20150128
  3. LEVOMEPROMAZINE [Concomitant]
     Active Substance: LEVOMEPROMAZINE
  4. DEXAMETHASONE. [Concomitant]
     Active Substance: DEXAMETHASONE
  5. NITROUS OXIDE (GENERIC) (NITROUS OXIDE) (***) (NITROUS OXIDE) (VERUM) [Suspect]
     Active Substance: NITROUS OXIDE
     Indication: GENERAL ANAESTHESIA
     Route: 055
     Dates: start: 20150128, end: 20150128
  6. AMILORIDE [Concomitant]
     Active Substance: AMILORIDE
  7. CASPOFUNGIN [Concomitant]
     Active Substance: CASPOFUNGIN
  8. CLARITHROMYCIN. [Concomitant]
     Active Substance: CLARITHROMYCIN
  9. VINCRISTINE [Concomitant]
     Active Substance: VINCRISTINE
  10. VALACICLOVIR [Concomitant]
     Active Substance: VALACYCLOVIR HYDROCHLORIDE
  11. CO-TRIMOXAZOLE (SULPHAMETHOXAZOLE + TRIMETHOPRIM) [Concomitant]
  12. METOCLOPRAMIDE. [Concomitant]
     Active Substance: METOCLOPRAMIDE
  13. ONDANSETRON [Concomitant]
     Active Substance: ONDANSETRON

REACTIONS (10)
  - Partial seizures with secondary generalisation [None]
  - Somnolence [None]
  - Disinhibition [None]
  - Muscular weakness [None]
  - Neurological symptom [None]
  - Agitation [None]
  - Leukoencephalopathy [None]
  - Vitamin B12 decreased [None]
  - Partial seizures [None]
  - Brain oedema [None]

NARRATIVE: CASE EVENT DATE: 20150201
